FAERS Safety Report 8576087-1 (Version None)
Quarter: 2012Q3

REPORT INFORMATION
  Report Type: 
  Country: None (occurrence: None)
  Receive Date: 20120724
  Receipt Date: 20120710
  Transmission Date: 20120928
  Serious: Yes (Hospitalization)
  Sender: FDA-Public Use
  Company Number: CA-008881

PATIENT
  Age: 85 Year
  Sex: Male

DRUGS (8)
  1. CALCIUM + VITAMIN D [Concomitant]
  2. TYLENOL (CAPLET) [Concomitant]
  3. ATORVASTATIN [Concomitant]
  4. FIRMAGON [Suspect]
     Indication: PROSTATE CANCER
     Dosage: 240 MG TOTAL SUBCUTANEOUS; 80 MG 1X/MONTH SUBCUTANEOUS
     Route: 058
     Dates: start: 20110803
  5. FIRMAGON [Suspect]
     Indication: PROSTATE CANCER
     Dosage: 240 MG TOTAL SUBCUTANEOUS; 80 MG 1X/MONTH SUBCUTANEOUS
     Route: 058
     Dates: start: 20110705, end: 20110705
  6. ASPIRIN [Concomitant]
  7. PANTOLOC /01263202/ [Concomitant]
  8. BICALUTAMIDE [Concomitant]

REACTIONS (6)
  - GASTROENTERITIS [None]
  - VOMITING [None]
  - FAECAL INCONTINENCE [None]
  - ASTHENIA [None]
  - DIARRHOEA [None]
  - ABDOMINAL PAIN [None]
